FAERS Safety Report 6958136-7 (Version None)
Quarter: 2010Q3

REPORT INFORMATION
  Report Type: 
  Country: None (occurrence: None)
  Receive Date: 20100831
  Receipt Date: 20100819
  Transmission Date: 20110219
  Serious: Yes (Other)
  Sender: FDA-Public Use
  Company Number: JP-PFIZER INC-2010101700

PATIENT
  Age: 72 Year
  Sex: Female

DRUGS (3)
  1. LYRICA [Suspect]
     Indication: POST HERPETIC NEURALGIA
     Dosage: 150 MG, DAILY
     Route: 048
     Dates: start: 20100805
  2. LAXOBERON [Concomitant]
     Dosage: UNK
     Route: 048
  3. METHYCOBAL [Concomitant]
     Dosage: UNK
     Route: 048

REACTIONS (1)
  - PERIORBITAL OEDEMA [None]
